FAERS Safety Report 22240502 (Version 1)
Quarter: 2023Q2

REPORT INFORMATION
  Report Type: Spontaneous
  Country: FR (occurrence: FR)
  Receive Date: 20230421
  Receipt Date: 20230421
  Transmission Date: 20230722
  Serious: Yes (Death)
  Sender: FDA-Public Use
  Company Number: None

PATIENT
  Age: 75 Year
  Sex: Male

DRUGS (3)
  1. VELCADE [Suspect]
     Active Substance: BORTEZOMIB
     Indication: Mantle cell lymphoma stage IV
     Dosage: 2.2 MILLIGRAM
     Route: 058
     Dates: start: 20210916, end: 20211216
  2. RITUXIMAB [Suspect]
     Active Substance: RITUXIMAB
     Indication: Mantle cell lymphoma stage IV
     Dosage: 630 MILLIGRAM
     Route: 042
     Dates: start: 20210916, end: 20211216
  3. BENDAMUSTINE [Suspect]
     Active Substance: BENDAMUSTINE
     Indication: Mantle cell lymphoma stage IV
     Dosage: 151 MILLIGRAM
     Route: 042
     Dates: start: 20210916, end: 20211216

REACTIONS (2)
  - Hepatitis fulminant [Fatal]
  - Hepatitis B reactivation [Fatal]

NARRATIVE: CASE EVENT DATE: 20220125
